FAERS Safety Report 25850073 (Version 2)
Quarter: 2025Q4

REPORT INFORMATION
  Report Type: Spontaneous
  Country: EU (occurrence: EU)
  Receive Date: 20250926
  Receipt Date: 20251008
  Transmission Date: 20260117
  Serious: Yes (Other)
  Sender: BRISTOL-MYERS SQUIBB COMPANY
  Company Number: EU-BRISTOL-MYERS SQUIBB COMPANY-2025-105133

PATIENT
  Age: 39 Year
  Sex: Male

DRUGS (5)
  1. MAVACAMTEN [Suspect]
     Active Substance: MAVACAMTEN
     Indication: Hypertrophic cardiomyopathy
  2. MAVACAMTEN [Suspect]
     Active Substance: MAVACAMTEN
  3. MAVACAMTEN [Suspect]
     Active Substance: MAVACAMTEN
  4. MAVACAMTEN [Suspect]
     Active Substance: MAVACAMTEN
  5. MAVACAMTEN [Suspect]
     Active Substance: MAVACAMTEN

REACTIONS (2)
  - Ejection fraction decreased [Recovered/Resolved]
  - Disease risk factor [Recovered/Resolved]

NARRATIVE: CASE EVENT DATE: 20250723
